FAERS Safety Report 4710648-2 (Version None)
Quarter: 2005Q3

REPORT INFORMATION
  Report Type: 
  Country: None (occurrence: None)
  Receive Date: 20050707
  Receipt Date: 20050617
  Transmission Date: 20060218
  Serious: Yes (Death, Life-Threatening, Hospitalization, Other)
  Sender: FDA-Public Use
  Company Number: EWC050543864

PATIENT
  Age: 81 Year
  Sex: Female
  Weight: 60 kg

DRUGS (6)
  1. TERIPARATIDE [Suspect]
     Indication: OSTEOPOROSIS
     Dosage: 20 UG/1 DAY
     Dates: start: 20041001, end: 20050207
  2. TERIPARATIDE [Suspect]
     Indication: SPINAL FRACTURE
     Dosage: 20 UG/1 DAY
     Dates: start: 20041001, end: 20050207
  3. LEVOTHYROXINE SODIUM [Concomitant]
  4. CORDARONE [Concomitant]
  5. MARCUMAR [Suspect]
  6. SIFROL (PRAMIPEXOLE DIHYDROCHLORIDE) [Concomitant]

REACTIONS (8)
  - ALANINE AMINOTRANSFERASE INCREASED [None]
  - ASPARTATE AMINOTRANSFERASE INCREASED [None]
  - BLOOD ALKALINE PHOSPHATASE INCREASED [None]
  - BLOOD LACTATE DEHYDROGENASE INCREASED [None]
  - ENDOSCOPIC RETROGRADE CHOLANGIOPANCREATOGRAPHY ABNORMAL [None]
  - GAMMA-GLUTAMYLTRANSFERASE INCREASED [None]
  - PANCREATITIS ACUTE [None]
  - SHOCK [None]
